FAERS Safety Report 7401119-3 (Version None)
Quarter: 2011Q2

REPORT INFORMATION
  Report Type: 
  Country: None (occurrence: None)
  Receive Date: 20110407
  Receipt Date: 20110216
  Transmission Date: 20111010
  Serious: Yes (Life-Threatening, Hospitalization, Disabling, Other)
  Sender: FDA-Public Use
  Company Number: US-BAYER-201030113NA

PATIENT
  Sex: Female
  Weight: 104 kg

DRUGS (8)
  1. YASMIN [Suspect]
     Indication: ORAL CONTRACEPTION
  2. PRILOSEC [Concomitant]
     Dosage: UNK
     Dates: start: 20040130
  3. ZOFRAN [Concomitant]
     Dosage: UNK
     Dates: start: 20040130
  4. VERAPAMIL [Concomitant]
     Dosage: UNK
     Dates: start: 20040130
  5. YASMIN [Suspect]
     Indication: MENSTRUAL CYCLE MANAGEMENT
     Route: 048
     Dates: start: 20030901, end: 20040130
  6. MULTI-VITAMIN [Concomitant]
     Dosage: UNK UNK, QD
     Route: 048
  7. UNCODEABLE ^UNCLASSIFIABLE^ [Concomitant]
     Dosage: UNK
     Dates: start: 20040103
  8. UNCODEABLE ^UNCLASSIFIABLE^ [Concomitant]
     Indication: HYPERTENSION

REACTIONS (5)
  - NERVOUS SYSTEM DISORDER [None]
  - CEREBROVASCULAR ACCIDENT [None]
  - CHOLELITHIASIS [None]
  - HEPATIC STEATOSIS [None]
  - DEPRESSION [None]
